FAERS Safety Report 8070429-1 (Version None)
Quarter: 2012Q1

REPORT INFORMATION
  Report Type: 
  Country: None (occurrence: None)
  Receive Date: 20120125
  Receipt Date: 20120116
  Transmission Date: 20120608
  Serious: Yes (Hospitalization, Other)
  Sender: FDA-Public Use
  Company Number: US-BRISTOL-MYERS SQUIBB COMPANY-14475214

PATIENT
  Age: 67 Year
  Sex: Male
  Weight: 90 kg

DRUGS (5)
  1. ARIXTRA [Suspect]
     Dosage: INJECTION
  2. COUMADIN [Suspect]
     Indication: CARDIAC DISORDER
     Dosage: DOSE:3.75MG LAST DOSE ON 01JAN2000
     Route: 048
     Dates: start: 20000101
  3. PLAVIX [Suspect]
     Indication: CARDIAC DISORDER
     Dosage: NIGHTLY STOPPED IN 2004 OR 2005 AND RESTARTED 2008
     Dates: start: 20000101
  4. COUMADIN [Suspect]
     Indication: ANTIPHOSPHOLIPID SYNDROME
     Dosage: DOSE:3.75MG LAST DOSE ON 01JAN2000
     Route: 048
     Dates: start: 20000101
  5. PLAVIX [Suspect]
     Indication: ANTIPHOSPHOLIPID SYNDROME
     Dosage: NIGHTLY STOPPED IN 2004 OR 2005 AND RESTARTED 2008
     Dates: start: 20000101

REACTIONS (8)
  - HAEMORRHAGE [None]
  - ACUTE MYOCARDIAL INFARCTION [None]
  - HIP FRACTURE [None]
  - ACCIDENT [None]
  - PIGMENTATION DISORDER [None]
  - URTICARIA [None]
  - ANGINA PECTORIS [None]
  - PRURITUS [None]
